FAERS Safety Report 18268262 (Version 1)
Quarter: 2020Q3

REPORT INFORMATION
  Report Type: Spontaneous
  Country: US (occurrence: US)
  Receive Date: 20200915
  Receipt Date: 20200915
  Transmission Date: 20201103
  Serious: Yes (Other)
  Sender: FDA-Public Use
  Company Number: US-ABBVIE-20K-163-3564113-00

PATIENT
  Sex: Female
  Weight: 59.02 kg

DRUGS (6)
  1. TRAZADONE (NON?ABBVIE) [Concomitant]
     Indication: SLEEP DISORDER
  2. LANTUS (NON?ABBVIE) [Concomitant]
     Indication: DIABETES MELLITUS
  3. DIPHENHYDRAMINE HCL (NON?ABBVIE) [Concomitant]
     Indication: HYPERSENSITIVITY
  4. HUMALOG (NON?ABBVIE) [Concomitant]
     Indication: DIABETES MELLITUS
  5. CREON [Suspect]
     Active Substance: PANCRELIPASE AMYLASE\PANCRELIPASE LIPASE\PANCRELIPASE PROTEASE
     Indication: PANCREATIC FAILURE
     Dosage: 12,000 USP WITH EVERY MEAL
     Route: 048
     Dates: start: 2016, end: 202008
  6. CREON [Suspect]
     Active Substance: PANCRELIPASE AMYLASE\PANCRELIPASE LIPASE\PANCRELIPASE PROTEASE
     Dosage: 36,000 USP WITH EVERY MEAL
     Route: 048
     Dates: start: 202008

REACTIONS (12)
  - Muscle spasms [Not Recovered/Not Resolved]
  - Drug ineffective [Recovering/Resolving]
  - Diarrhoea [Recovering/Resolving]
  - Dizziness [Not Recovered/Not Resolved]
  - Headache [Not Recovered/Not Resolved]
  - Haematemesis [Recovered/Resolved]
  - Abdominal pain upper [Not Recovered/Not Resolved]
  - Abdominal distension [Not Recovered/Not Resolved]
  - Diarrhoea haemorrhagic [Recovered/Resolved]
  - Nausea [Not Recovered/Not Resolved]
  - Arthralgia [Not Recovered/Not Resolved]
  - Nasopharyngitis [Not Recovered/Not Resolved]

NARRATIVE: CASE EVENT DATE: 2018
